FAERS Safety Report 19877460 (Version 1)
Quarter: 2021Q3

REPORT INFORMATION
  Report Type: Spontaneous
  Country: US (occurrence: US)
  Receive Date: 20210924
  Receipt Date: 20210924
  Transmission Date: 20211014
  Serious: No
  Sender: FDA-Public Use
  Company Number: US-ALLERGAN-2102407US

PATIENT
  Sex: Female
  Weight: 39.46 kg

DRUGS (1)
  1. SUCRALFATE TABLET [Suspect]
     Active Substance: SUCRALFATE
     Indication: GASTROINTESTINAL ULCER
     Dosage: UNK, BID
     Route: 048
     Dates: start: 2020

REACTIONS (3)
  - Intentional product misuse [Unknown]
  - Abdominal pain upper [Unknown]
  - Abdominal distension [Unknown]
